FAERS Safety Report 23100482 (Version 1)
Quarter: 2023Q4

REPORT INFORMATION
  Report Type: Report from Study
  Country: US (occurrence: US)
  Receive Date: 20231024
  Receipt Date: 20231024
  Transmission Date: 20240110
  Serious: Yes (Other)
  Sender: FDA-Public Use
  Company Number: US-PHARMAAND-2023PHR00148

PATIENT
  Sex: Male
  Weight: 82.28 kg

DRUGS (2)
  1. RUBRACA [Suspect]
     Active Substance: RUCAPARIB CAMSYLATE
     Indication: Prostate cancer
     Dosage: 600 MILLIGRAM EVERY 12 HOUR(S)
     Route: 048
     Dates: start: 20230915
  2. WARFARIN [Concomitant]
     Active Substance: WARFARIN
     Indication: Product used for unknown indication

REACTIONS (5)
  - Urinary tract infection [Unknown]
  - Abdominal pain [Unknown]
  - Back pain [Unknown]
  - International normalised ratio increased [Unknown]
  - Fatigue [Not Recovered/Not Resolved]
